FAERS Safety Report 5750927-3 (Version None)
Quarter: 2008Q2

REPORT INFORMATION
  Report Type: 
  Country: None (occurrence: None)
  Receive Date: 20080528
  Receipt Date: 20080526
  Transmission Date: 20081010
  Serious: Yes (Hospitalization)
  Sender: FDA-Public Use
  Company Number: DE-MERCK-0805DEU00094

PATIENT
  Age: 63 Year
  Sex: Female

DRUGS (10)
  1. ZETIA [Suspect]
     Route: 048
     Dates: start: 20080523, end: 20080523
  2. CETIRIZINE HYDROCHLORIDE [Suspect]
     Route: 048
     Dates: start: 20080523, end: 20080523
  3. TRIAMTERENE AND HYDROCHLOROTHIAZIDE [Suspect]
     Route: 048
     Dates: start: 20080523, end: 20080523
  4. VASOTEC [Suspect]
     Route: 048
     Dates: start: 20080523, end: 20080523
  5. FLUOXETINE HCL [Suspect]
     Route: 048
     Dates: start: 20080523, end: 20080523
  6. ITRACONAZOLE [Suspect]
     Route: 048
     Dates: start: 20080523, end: 20080523
  7. TEMAZEPAM [Suspect]
     Route: 048
     Dates: start: 20080523, end: 20080523
  8. ZOLPIDEM TARTRATE [Suspect]
     Route: 048
     Dates: start: 20080523, end: 20080523
  9. TETRAZEPAM [Suspect]
     Route: 048
     Dates: start: 20080523, end: 20080523
  10. VERAPAMIL [Suspect]
     Route: 048
     Dates: start: 20080523, end: 20080523

REACTIONS (3)
  - OVERDOSE [None]
  - SOMNOLENCE [None]
  - SUICIDE ATTEMPT [None]
